FAERS Safety Report 19708104 (Version 3)
Quarter: 2022Q1

REPORT INFORMATION
  Report Type: Report from Study
  Country: IT (occurrence: IT)
  Receive Date: 20210817
  Receipt Date: 20220207
  Transmission Date: 20220423
  Serious: Yes (Life-Threatening)
  Sender: FDA-Public Use
  Company Number: None

PATIENT
  Age: 78 Year
  Sex: Male

DRUGS (1)
  1. CISATRACURIUM [Suspect]
     Active Substance: CISATRACURIUM
     Indication: Endotracheal intubation
     Dosage: TOTAL
     Route: 042
     Dates: start: 20210408, end: 20210408

REACTIONS (2)
  - Wrong patient received product [Unknown]
  - Dyspnoea [Recovered/Resolved]

NARRATIVE: CASE EVENT DATE: 20210408
